FAERS Safety Report 6581371-7 (Version None)
Quarter: 2010Q1

REPORT INFORMATION
  Report Type: 
  Country: None (occurrence: None)
  Receive Date: 20100215
  Receipt Date: 20100203
  Transmission Date: 20100710
  Serious: Yes (Hospitalization)
  Sender: FDA-Public Use
  Company Number: JP-JNJFOC-20100203416

PATIENT
  Age: 32 Year
  Sex: Male

DRUGS (6)
  1. RISPERDAL CONSTA [Suspect]
     Indication: SCHIZOPHRENIA
     Route: 030
  2. RISPERDAL CONSTA [Suspect]
     Route: 030
  3. RISPERDAL [Suspect]
     Indication: SCHIZOPHRENIA
     Route: 048
  4. AKIRIDEN [Concomitant]
     Indication: PROPHYLAXIS
     Route: 048
  5. ZOPICOOL [Concomitant]
     Indication: INSOMNIA
     Route: 048
  6. HIRNAMIN (LEVOPROMAZINE MALEATE) [Concomitant]
     Indication: INSOMNIA
     Route: 048

REACTIONS (2)
  - INAPPROPRIATE SCHEDULE OF DRUG ADMINISTRATION [None]
  - LIBIDO INCREASED [None]
